FAERS Safety Report 5355709-2 (Version None)
Quarter: 2007Q2

REPORT INFORMATION
  Report Type: 
  Country: None (occurrence: None)
  Receive Date: 20070613
  Receipt Date: 20070608
  Transmission Date: 20071010
  Serious: Yes (Life-Threatening)
  Sender: FDA-Public Use
  Company Number: AU-ASTRAZENECA-2003AP03092

PATIENT
  Age: 22982 Day
  Sex: Male

DRUGS (10)
  1. LOSEC [Suspect]
     Indication: HELICOBACTER GASTRITIS
     Route: 048
     Dates: start: 20030117, end: 20030121
  2. LOSEC [Suspect]
     Route: 048
  3. AMOXICILLIN [Suspect]
     Indication: HELICOBACTER GASTRITIS
     Route: 048
     Dates: start: 20030117, end: 20030121
  4. CLARITHROMYCIN [Suspect]
     Indication: HELICOBACTER GASTRITIS
     Route: 048
     Dates: start: 20030117, end: 20030121
  5. NILSTAT [Suspect]
     Dates: start: 20030125, end: 20030201
  6. PANTOPRAZOLE SODIUM [Suspect]
     Indication: GASTRITIS
     Dates: start: 20030102, end: 20030117
  7. PANTOPRAZOLE SODIUM [Suspect]
     Indication: DUODENITIS
     Dates: start: 20030102, end: 20030117
  8. PANTOPRAZOLE SODIUM [Suspect]
     Indication: DYSPEPSIA
     Dates: start: 20030102, end: 20030117
  9. DICLOFENAC [Concomitant]
     Indication: JOINT INJURY
  10. ROFECOXIB [Concomitant]
     Indication: JOINT INJURY

REACTIONS (4)
  - ABDOMINAL PAIN [None]
  - LETHARGY [None]
  - NEPHRITIS INTERSTITIAL [None]
  - WEIGHT DECREASED [None]
